FAERS Safety Report 5467717-1 (Version None)
Quarter: 2007Q3

REPORT INFORMATION
  Report Type: 
  Country: None (occurrence: None)
  Receive Date: 20070921
  Receipt Date: 20070906
  Transmission Date: 20080115
  Serious: Yes (Other)
  Sender: FDA-Public Use
  Company Number: 2007US-09809

PATIENT
  Age: 78 Year
  Sex: Female

DRUGS (1)
  1. GALANTAMINE (GALANTAMINE) UNKNOWN [Suspect]
     Indication: DEMENTIA ALZHEIMER'S TYPE

REACTIONS (2)
  - PLEUROTHOTONUS [None]
  - POSTURE ABNORMAL [None]
